FAERS Safety Report 4701289-1 (Version None)
Quarter: 2005Q2

REPORT INFORMATION
  Report Type: 
  Country: None (occurrence: None)
  Receive Date: 20050624
  Receipt Date: 20050613
  Transmission Date: 20051028
  Serious: Yes (Other)
  Sender: FDA-Public Use
  Company Number: 2005089540

PATIENT
  Sex: Female
  Weight: 56.6996 kg

DRUGS (4)
  1. XALATAN [Suspect]
     Indication: GLAUCOMA
     Dosage: OPHTHALMIC
     Route: 047
  2. PLAVIX [Suspect]
     Indication: PERIPHERAL VASCULAR DISORDER
     Dosage: 75 MG (75 MG, DAILY INTERVAL: EVERY DAY), ORAL
     Route: 048
     Dates: start: 20050611
  3. LOTREL [Concomitant]
  4. CLARINEX [Concomitant]

REACTIONS (3)
  - EYE PRURITUS [None]
  - PERIPHERAL VASCULAR DISORDER [None]
  - VISION BLURRED [None]
